FAERS Safety Report 6674589-6 (Version None)
Quarter: 2010Q2

REPORT INFORMATION
  Report Type: 
  Country: None (occurrence: None)
  Receive Date: 20100409
  Receipt Date: 20100402
  Transmission Date: 20101027
  Serious: Yes (Death, Hospitalization, Disabling)
  Sender: FDA-Public Use
  Company Number: US-ROCHE-522402

PATIENT
  Sex: Female
  Weight: 50.3 kg

DRUGS (22)
  1. TOCILIZUMAB [Suspect]
     Indication: RHEUMATOID ARTHRITIS
     Route: 042
     Dates: start: 20060208, end: 20060208
  2. TOCILIZUMAB [Suspect]
     Route: 042
     Dates: start: 20070515, end: 20070515
  3. TOCILIZUMAB [Suspect]
     Route: 042
     Dates: start: 20070611, end: 20070611
  4. TOCILIZUMAB [Suspect]
     Route: 042
     Dates: start: 20070716, end: 20070716
  5. TOCILIZUMAB [Suspect]
     Route: 042
     Dates: start: 20070807, end: 20070807
  6. TOCILIZUMAB [Suspect]
     Route: 042
  7. PNEUMOVAX 23 [Concomitant]
     Dosage: DRUG NAME REPORTED AS PNEUMOVAX VACCINE.
     Dates: start: 20040101, end: 20040101
  8. ZOSTAVAX [Concomitant]
     Indication: ANTIVIRAL PROPHYLAXIS
     Dosage: DRUG NAME REPORTED AS ZOSTAVAX VACCINE 0.65ML SD
     Dates: start: 20070123, end: 20070123
  9. METHOTREXATE [Concomitant]
     Route: 048
     Dates: start: 20051202, end: 20070909
  10. METHOTREXATE [Concomitant]
     Route: 048
     Dates: start: 20070929, end: 20071020
  11. FOLIC ACID [Concomitant]
     Dates: start: 20051123
  12. ALENDRONATE SODIUM [Concomitant]
     Indication: OSTEOPOROSIS
     Dates: start: 20010101, end: 20070203
  13. ALENDRONATE SODIUM [Concomitant]
     Dosage: ALENDRONATE SODIUM IS IN COMBINATION WITH 400 UNITS OF VIT D.
     Dates: start: 20070210, end: 20071020
  14. ATORVASTATIN CALCIUM [Concomitant]
     Indication: HYPERCHOLESTEROLAEMIA
     Dates: start: 20020101, end: 20070821
  15. SIMVASTATIN [Concomitant]
     Indication: HYPERCHOLESTEROLAEMIA
     Dates: start: 20070822
  16. FISH OIL [Concomitant]
     Dosage: DRUG NAME REPORTED AS FISH OIL SUPPLEMENT.
     Dates: start: 20061216
  17. NABUMETONE [Concomitant]
     Dates: start: 20060402
  18. CALCIUM/VITAMIN D [Concomitant]
     Indication: OSTEOPOROSIS
     Route: 048
     Dates: end: 20071020
  19. VITAMINE D [Concomitant]
     Indication: OSTEOPOROSIS
     Dosage: DOSE:400 DAILY (UNIT NOT LEGIBLE)
     Route: 048
     Dates: end: 20070301
  20. REFRESH CELLUVISC [Concomitant]
     Dosage: 1 GTT; ROUTE:OCULAR
     Route: 050
     Dates: start: 20060503
  21. ADVAIR DISKUS 100/50 [Concomitant]
     Dosage: UNIT:PUFF
     Dates: start: 20051001
  22. COMBIVENT [Concomitant]
     Dosage: DRUG:COMBIVENT 120/20; DOSE:2 PUFF PRN
     Dates: start: 20051001

REACTIONS (1)
  - LUNG SQUAMOUS CELL CARCINOMA STAGE IV [None]
